FAERS Safety Report 7126863-7 (Version None)
Quarter: 2010Q4

REPORT INFORMATION
  Report Type: 
  Country: None (occurrence: None)
  Receive Date: 20101129
  Receipt Date: 20091114
  Transmission Date: 20110411
  Serious: No
  Sender: FDA-Public Use
  Company Number: US-PFIZER INC-2009298881

PATIENT
  Sex: Male
  Weight: 79.8 kg

DRUGS (4)
  1. VIAGRA [Suspect]
     Indication: ERECTILE DYSFUNCTION
     Dosage: 50 MG, UNK
     Dates: start: 20091113
  2. ATENOLOL [Concomitant]
     Indication: HYPERTENSION
  3. METHADONE [Concomitant]
     Indication: BACK PAIN
  4. VALIUM [Concomitant]

REACTIONS (1)
  - DRUG INEFFECTIVE [None]
